FAERS Safety Report 6587539-8 (Version None)
Quarter: 2010Q1

REPORT INFORMATION
  Report Type: 
  Country: None (occurrence: None)
  Receive Date: 20100218
  Receipt Date: 20100209
  Transmission Date: 20100710
  Serious: Yes (Hospitalization)
  Sender: FDA-Public Use
  Company Number: US-BIOGENIDEC-2009BI017831

PATIENT
  Age: 52 Year
  Sex: Female

DRUGS (12)
  1. TYSABRI [Suspect]
     Indication: MULTIPLE SCLEROSIS
     Route: 042
     Dates: start: 20080917
  2. FLUOXETINE [Concomitant]
  3. ALPRAZOLAM [Concomitant]
  4. CLOMIPRAMINE HCL [Concomitant]
  5. CLONAZEPAM [Concomitant]
  6. TRAZODONE [Concomitant]
  7. GABAPENTIN [Concomitant]
  8. SEROQUEL [Concomitant]
  9. NAMENDA [Concomitant]
  10. OMEPRAZOLE [Concomitant]
  11. DETROL [Concomitant]
  12. MARIJUANA [Concomitant]

REACTIONS (5)
  - BLOOD CANNABINOIDS INCREASED [None]
  - DYSPHAGIA [None]
  - HYPOTENSION [None]
  - NORMOCHROMIC NORMOCYTIC ANAEMIA [None]
  - PNEUMONITIS [None]
